FAERS Safety Report 8262799 (Version 9)
Quarter: 2013Q4

REPORT INFORMATION
  Report Type: Spontaneous
  Country: US (occurrence: US)
  Receive Date: 20111124
  Receipt Date: 20131129
  Transmission Date: 20140711
  Serious: Yes (Hospitalization, Other)
  Sender: FDA-Public Use
  Company Number: US-ROCHE-1015924

PATIENT
  Age: 47 Year
  Sex: Female
  Weight: 89.44 kg

DRUGS (9)
  1. ACCUTANE [Suspect]
     Indication: ACNE
     Route: 065
     Dates: start: 20000920, end: 20010513
  2. CARBAMAZEPINE [Concomitant]
     Indication: PRODUCT USED FOR UNKNOWN INDICATION
  3. DEPAKOTE [Concomitant]
     Indication: PRODUCT USED FOR UNKNOWN INDICATION
  4. RITALIN [Concomitant]
     Indication: PRODUCT USED FOR UNKNOWN INDICATION
  5. CELEXA (UNITED STATES) [Concomitant]
  6. KLONOPIN [Concomitant]
  7. WELLBUTRIN [Concomitant]
  8. DESYREL [Concomitant]
  9. NAVANE [Concomitant]

REACTIONS (9)
  - Colon cancer [Unknown]
  - Inflammatory bowel disease [Unknown]
  - Depression [Not Recovered/Not Resolved]
  - Amnesia [Unknown]
  - Injury [Unknown]
  - Suicidal ideation [Unknown]
  - Large intestine polyp [Unknown]
  - Suicide attempt [Unknown]
  - Arthralgia [Unknown]
